FAERS Safety Report 10869129 (Version 3)
Quarter: 2015Q2

REPORT INFORMATION
  Report Type: Spontaneous
  Country: US (occurrence: US)
  Receive Date: 20150225
  Receipt Date: 20150521
  Transmission Date: 20150821
  Serious: Yes (Other)
  Sender: FDA-Public Use
  Company Number: US-009507513-1502USA008089

PATIENT
  Sex: Female
  Weight: 119.73 kg

DRUGS (2)
  1. NEXPLANON [Suspect]
     Active Substance: ETONOGESTREL
     Indication: CONTRACEPTION
     Dosage: 1 ROD /3YEARS
     Route: 059
     Dates: start: 20140827, end: 20150217
  2. NEXPLANON [Suspect]
     Active Substance: ETONOGESTREL
     Dosage: UNK
     Route: 059
     Dates: start: 20150218

REACTIONS (2)
  - Device kink [Recovered/Resolved]
  - No adverse event [Unknown]
